FAERS Safety Report 5197202-6 (Version None)
Quarter: 2006Q4

REPORT INFORMATION
  Report Type: 
  Country: None (occurrence: None)
  Receive Date: 20061227
  Receipt Date: 20061218
  Transmission Date: 20070319
  Serious: Yes (Life-Threatening, Other)
  Sender: FDA-Public Use
  Company Number: 06H-167-0311533-00

PATIENT
  Age: 46 Year
  Sex: Female

DRUGS (22)
  1. PROPOFOL [Suspect]
     Indication: GENERAL ANAESTHESIA
     Dates: start: 20060101, end: 20060101
  2. AMOXICILLIN [Suspect]
     Indication: ANTIBIOTIC PROPHYLAXIS
     Dates: start: 20060101, end: 20060101
  3. DICLOFENAC (DICLOFENAC) [Suspect]
     Dates: start: 20060101, end: 20060101
  4. EPHEDRINE SUL CAP [Suspect]
     Indication: HYPOTENSION
     Dosage: 6 MG, ONCE
     Dates: start: 20060101, end: 20060101
  5. FENTANYL [Suspect]
     Indication: GENERAL ANAESTHESIA
     Dates: start: 20060101, end: 20060101
  6. GLYCOPYRROLATE [Suspect]
     Indication: NEUROMUSCULAR BLOCKADE REVERSAL
     Dates: start: 20060101, end: 20060101
  7. ISOFLURANE [Suspect]
     Indication: GENERAL ANAESTHESIA
     Dates: start: 20060101, end: 20060101
  8. MORPHINE [Suspect]
     Indication: GENERAL ANAESTHESIA
     Dates: start: 20060101, end: 20060101
  9. NEOSTIGMINE (NEOSTIGMINE) [Suspect]
     Indication: NEUROMUSCULAR BLOCKADE REVERSAL
     Dates: start: 20060101, end: 20060101
  10. NITROUS OXIDE (NITROUS OXIDE) [Suspect]
     Indication: GENERAL ANAESTHESIA
     Dates: start: 20060101, end: 20060101
  11. ONDANSETRON HCL [Suspect]
     Dates: start: 20060101, end: 20060101
  12. OXYGEN (OXYGEN) [Suspect]
     Dates: start: 20060101, end: 20060101
  13. VECURONIUM BROMIDE [Suspect]
     Indication: GENERAL ANAESTHESIA
     Dates: start: 20060101, end: 20060101
  14. CO-DYDRAMOL (PARAMOL-118) [Concomitant]
  15. DIAZEPAM [Concomitant]
  16. ESCITALOPRAM OXALATE [Concomitant]
  17. NORETHINDRONE ACETATE [Concomitant]
  18. ZOLPIDEM TARTRATE [Concomitant]
  19. GLYCOPYRROLATE [Concomitant]
  20. ISOFLURANE [Concomitant]
  21. MORPHINE [Concomitant]
  22. NEOSTIGMINE (NEOSTIGMINE) [Concomitant]

REACTIONS (9)
  - ABDOMINAL DISTENSION [None]
  - ACUTE HEPATIC FAILURE [None]
  - HYPOTENSION [None]
  - OXYGEN SATURATION DECREASED [None]
  - POST PROCEDURAL COMPLICATION [None]
  - SOMNOLENCE [None]
  - STRIDOR [None]
  - TACHYCARDIA [None]
  - TACHYPNOEA [None]
